FAERS Safety Report 26092899 (Version 3)
Quarter: 2025Q4

REPORT INFORMATION
  Report Type: Report from Study
  Country: KW (occurrence: KW)
  Receive Date: 20251126
  Receipt Date: 20251222
  Transmission Date: 20260118
  Serious: Yes (Hospitalization)
  Sender: PFIZER
  Company Number: KW-PFIZER INC-PV202500137334

PATIENT
  Age: 38 Year
  Sex: Male

DRUGS (2)
  1. BRAFTOVI [Suspect]
     Active Substance: ENCORAFENIB
     Indication: Colorectal cancer metastatic
     Dosage: 300 MG, 1X/DAY, START DATE: 2 MONTHS AND A HALF AGO
     Route: 048
     Dates: start: 20250922, end: 202511
  2. CETUXIMAB [Concomitant]
     Active Substance: CETUXIMAB
     Indication: Colorectal cancer metastatic
     Dosage: UNK

REACTIONS (8)
  - Skin burning sensation [Recovering/Resolving]
  - Skin exfoliation [Recovering/Resolving]
  - Oral fungal infection [Recovering/Resolving]
  - Skin atrophy [Not Recovered/Not Resolved]
  - Wound dehiscence [Unknown]
  - Wound secretion [Unknown]
  - Abdominal distension [Unknown]
  - Pelvic abscess [Unknown]

NARRATIVE: CASE EVENT DATE: 20250101
